FAERS Safety Report 7762125-2 (Version None)
Quarter: 2011Q3

REPORT INFORMATION
  Report Type: 
  Country: None (occurrence: None)
  Receive Date: 20110919
  Receipt Date: 20110919
  Transmission Date: 20111222
  Serious: Yes (Hospitalization)
  Sender: FDA-Public Use
  Company Number: None

PATIENT
  Sex: Female
  Weight: 82.5 kg

DRUGS (2)
  1. TAXOL [Suspect]
     Dosage: 325 MG
  2. IFOSFAMIDE [Suspect]
     Dosage: 8.92 MG

REACTIONS (4)
  - URINARY TRACT INFECTION [None]
  - INTERNATIONAL NORMALISED RATIO INCREASED [None]
  - CONFUSIONAL STATE [None]
  - RENAL IMPAIRMENT [None]
